FAERS Safety Report 8618482-8 (Version None)
Quarter: 2012Q2

REPORT INFORMATION
  Report Type: 
  Country: None (occurrence: None)
  Receive Date: 20120423
  Receipt Date: 20090515
  Transmission Date: 20120825
  Serious: Yes (Death)
  Sender: FDA-Public Use
  Company Number: PHEH2009US12130

PATIENT
  Age: 90 Year
  Sex: Male
  Weight: 68 kg

DRUGS (2)
  1. EXJADE [Suspect]
     Indication: MYELODYSPLASTIC SYNDROME
     Dosage: 1500MG /DAILY, ORAL
     Route: 048
     Dates: start: 20060912, end: 20070501
  2. EXJADE [Suspect]
     Indication: MYELODYSPLASTIC SYNDROME
     Dosage: 1500MG /DAILY, ORAL
     Route: 048
     Dates: start: 20070501

REACTIONS (1)
  - NEOPLASM MALIGNANT [None]
